FAERS Safety Report 7635787-8 (Version None)
Quarter: 2011Q3

REPORT INFORMATION
  Report Type: 
  Country: None (occurrence: None)
  Receive Date: 20110719
  Receipt Date: 20110704
  Transmission Date: 20111222
  Serious: Yes (Life-Threatening, Hospitalization)
  Sender: FDA-Public Use
  Company Number: LTI2011A00169

PATIENT
  Age: 59 Year
  Sex: Male

DRUGS (4)
  1. METFORMIN HCL [Concomitant]
  2. BISOPROLOL FUMARATE [Concomitant]
  3. DIAMICRON (GLICLAZIDE) [Concomitant]
  4. ACTOS [Suspect]
     Indication: TYPE 2 DIABETES MELLITUS
     Dosage: 30 MG (30 MG, 1 IN 1 D)
     Route: 048
     Dates: start: 20051101, end: 20110601

REACTIONS (12)
  - BLADDER TRANSITIONAL CELL CARCINOMA [None]
  - OEDEMA PERIPHERAL [None]
  - HAEMORRHOIDS [None]
  - HYPOCHROMIC ANAEMIA [None]
  - AORTIC BYPASS [None]
  - PYREXIA [None]
  - BLOOD IRON DECREASED [None]
  - RENAL FAILURE CHRONIC [None]
  - URINE ABNORMALITY [None]
  - HYDRONEPHROSIS [None]
  - LUNG NEOPLASM [None]
  - RENAL ATROPHY [None]
